FAERS Safety Report 6483267-8 (Version None)
Quarter: 2009Q4

REPORT INFORMATION
  Report Type: 
  Country: None (occurrence: None)
  Receive Date: 20091209
  Receipt Date: 20091203
  Transmission Date: 20100525
  Serious: Yes (Disabling)
  Sender: FDA-Public Use
  Company Number: JP-BAYER-200914392BYL

PATIENT
  Age: 73 Year
  Sex: Male

DRUGS (4)
  1. NEXAVAR [Suspect]
     Indication: HEPATIC NEOPLASM MALIGNANT
     Dosage: UNIT DOSE: 200 MG
     Route: 048
     Dates: start: 20090902, end: 20091009
  2. NEXAVAR [Suspect]
     Dosage: UNIT DOSE: 200 MG
     Route: 048
     Dates: start: 20091009, end: 20091023
  3. RANDA [Concomitant]
     Route: 042
     Dates: start: 20090305, end: 20090812
  4. FLUOROURACIL [Concomitant]
     Route: 042
     Dates: start: 20090305, end: 20090812

REACTIONS (2)
  - DYSPHONIA [None]
  - VISUAL IMPAIRMENT [None]
